FAERS Safety Report 4597951-4 (Version None)
Quarter: 2005Q1

REPORT INFORMATION
  Report Type: 
  Country: None (occurrence: None)
  Receive Date: 20050301
  Receipt Date: 20050216
  Transmission Date: 20050727
  Serious: Yes (Hospitalization)
  Sender: FDA-Public Use
  Company Number: 2005031447

PATIENT
  Age: 40 Year
  Sex: Female
  Weight: 59.8748 kg

DRUGS (1)
  1. NICOTROL [Suspect]
     Indication: SMOKING CESSATION THERAPY
     Dosage: 1-2 PUFFS  Q 2-3 HOURS, INHALATION
     Route: 055
     Dates: start: 20050101, end: 20050101

REACTIONS (4)
  - KIDNEY INFECTION [None]
  - MALAISE [None]
  - STOMATITIS [None]
  - THROAT IRRITATION [None]
